FAERS Safety Report 4469235-6 (Version None)
Quarter: 2004Q4

REPORT INFORMATION
  Report Type: 
  Country: None (occurrence: None)
  Receive Date: 20041008
  Receipt Date: 20040816
  Transmission Date: 20050328
  Serious: Yes (Hospitalization)
  Sender: FDA-Public Use
  Company Number: 200416150US

PATIENT
  Sex: Female

DRUGS (6)
  1. LANTUS [Suspect]
     Indication: DIABETES MELLITUS NON-INSULIN-DEPENDENT
     Dosage: DOSE UNIT: UNITS
     Dates: start: 20030101
  2. GLUCOPHAGE [Concomitant]
     Dosage: DOSE: NOT PROVIDED
  3. STARLIX [Concomitant]
     Dosage: DOSE: NOT PROVIDED
  4. VASOTEC [Concomitant]
     Dosage: DOSE: NOT PROVIDED
  5. PAXIL [Concomitant]
     Dosage: DOSE: NOT PROVIDED
  6. EFFEXOR [Concomitant]
     Dosage: DOSE: NOT PROVIDED

REACTIONS (11)
  - ABDOMINAL PAIN [None]
  - BACTERIAL INFECTION [None]
  - DEHYDRATION [None]
  - DIARRHOEA [None]
  - DISORIENTATION [None]
  - FOOD POISONING [None]
  - HYPERHIDROSIS [None]
  - MEDICATION ERROR [None]
  - PHARMACEUTICAL PRODUCT COMPLAINT [None]
  - VOMITING [None]
  - WHITE BLOOD CELL COUNT INCREASED [None]
